FAERS Safety Report 4609614-7 (Version None)
Quarter: 2005Q1

REPORT INFORMATION
  Report Type: 
  Country: None (occurrence: None)
  Receive Date: 20050316
  Receipt Date: 20050309
  Transmission Date: 20050727
  Serious: Yes (Hospitalization, Disabling)
  Sender: FDA-Public Use
  Company Number: 200512256GDDC

PATIENT
  Age: 73 Year
  Sex: Male
  Weight: 91.5 kg

DRUGS (5)
  1. ANTINEOPLASTIC AND IMMUNOSUPPRESSIVE AGENTS [Concomitant]
     Dosage: DOSE: CUMULATIVE DOSE 4460 MG
     Route: 042
     Dates: start: 20050222, end: 20050301
  2. DOCETAXEL [Suspect]
     Dosage: DOSE: CUMULATIVE DOSE 150 MG
     Route: 042
     Dates: start: 20050226
  3. AMLODIPINE [Concomitant]
  4. ENALAPRIL [Concomitant]
  5. SIMVASTATIN [Concomitant]

REACTIONS (6)
  - BLOOD CREATININE INCREASED [None]
  - BLOOD SODIUM DECREASED [None]
  - DIARRHOEA [None]
  - DRUG INEFFECTIVE [None]
  - NEUTROPENIA [None]
  - REFUSAL OF TREATMENT BY PATIENT [None]
